FAERS Safety Report 9649298 (Version 2)
Quarter: 2014Q1

REPORT INFORMATION
  Report Type: Spontaneous
  Country: US (occurrence: None)
  Receive Date: 20131018
  Receipt Date: 20140122
  Transmission Date: 20141002
  Serious: No
  Sender: FDA-Public Use
  Company Number: AEGR000104

PATIENT
  Age: 68 Year
  Sex: Female

DRUGS (3)
  1. JUXTAPID [Suspect]
     Indication: TYPE IIA HYPERLIPIDAEMIA
     Route: 048
     Dates: start: 20130731, end: 2013
  2. BYSTOLIC (NEBIVOLOL HYDROCHLORIDE), 5 MG [Concomitant]
  3. PROTONIX (PANTOPRAZOLE SODIUM SESQUIHYDRATE), 40 MG [Concomitant]

REACTIONS (5)
  - Diarrhoea [None]
  - Nausea [None]
  - Abdominal pain upper [None]
  - Muscle spasms [None]
  - Vomiting [None]
